FAERS Safety Report 18014417 (Version 2)
Quarter: 2020Q4

REPORT INFORMATION
  Report Type: Spontaneous
  Country: GB (occurrence: GB)
  Receive Date: 20200713
  Receipt Date: 20201012
  Transmission Date: 20210113
  Serious: Yes (Other)
  Sender: FDA-Public Use
  Company Number: NVSC2020GB190746

PATIENT
  Age: 50 Year
  Sex: Female

DRUGS (3)
  1. ADALIMUMAB [Suspect]
     Active Substance: ADALIMUMAB
     Indication: PSORIATIC ARTHROPATHY
     Dosage: UNK
     Route: 058
  2. HUMIRA [Suspect]
     Active Substance: ADALIMUMAB
     Dosage: 40 MG, BIW
     Route: 058
  3. HUMIRA [Suspect]
     Active Substance: ADALIMUMAB
     Indication: PSORIATIC ARTHROPATHY
     Dosage: 40 MG, BIW
     Route: 058

REACTIONS (14)
  - Epilepsy [Unknown]
  - Injection site pain [Unknown]
  - Psoriasis [Recovering/Resolving]
  - Back pain [Recovering/Resolving]
  - Arthralgia [Recovering/Resolving]
  - Psoriatic arthropathy [Recovering/Resolving]
  - Pain in extremity [Unknown]
  - Fall [Unknown]
  - Memory impairment [Unknown]
  - Fatigue [Unknown]
  - Gait disturbance [Unknown]
  - Mass [Unknown]
  - Hypertension [Unknown]
  - Skin disorder [Unknown]

NARRATIVE: CASE EVENT DATE: 2020
